FAERS Safety Report 8814347 (Version 1)
Quarter: 2012Q4

REPORT INFORMATION
  Report Type: 
  Country: None (occurrence: None)
  Receive Date: 20120925
  Receipt Date: 20120925
  Transmission Date: 20130627
  Serious: Yes (Hospitalization, Congenital Anomaly, Other)
  Sender: FDA-Public Use
  Company Number: AUR-APL-2012-04075

PATIENT
  Age: 0 Year
  Sex: Female
  Weight: 2.4 kg

DRUGS (5)
  1. LAMOTRIGINE (LAMOTRIGINE) [Suspect]
     Indication: EPILEPSY
     Dates: start: 20110709, end: 20120321
  2. LAMOTRIGINE (LAMOTRIGINE) [Suspect]
     Indication: EPILEPSY
     Route: 064
  3. INFLUENZA VACCINES [Suspect]
     Route: 064
  4. HUMALOG (INSULIN) [Concomitant]
  5. NOVORAPID (INSULIN ASPART) [Concomitant]

REACTIONS (5)
  - Gastroschisis [None]
  - Caesarean section [None]
  - Atrial septal defect [None]
  - Haemangioma [None]
  - Maternal drugs affecting foetus [None]
